FAERS Safety Report 7069862-6 (Version None)
Quarter: 2010Q4

REPORT INFORMATION
  Report Type: 
  Country: None (occurrence: None)
  Receive Date: 20101028
  Receipt Date: 20100707
  Transmission Date: 20110411
  Serious: No
  Sender: FDA-Public Use
  Company Number: US-WYE-H16046910

PATIENT
  Age: 78 Year
  Sex: Female
  Weight: 44.49 kg

DRUGS (5)
  1. CORDARONE [Suspect]
     Indication: ATRIAL FIBRILLATION
     Route: 065
     Dates: start: 20100629
  2. CALCIUM [Concomitant]
  3. MULTIVIT [Concomitant]
  4. LEXAPRO [Concomitant]
  5. AGGRENOX [Concomitant]

REACTIONS (6)
  - BREAST PAIN [None]
  - BREAST TENDERNESS [None]
  - FATIGUE [None]
  - PAIN IN EXTREMITY [None]
  - SENSATION OF HEAVINESS [None]
  - VEIN DISORDER [None]
